FAERS Safety Report 9749704 (Version 2)
Quarter: 2014Q1

REPORT INFORMATION
  Report Type: Spontaneous
  Country: US (occurrence: US)
  Receive Date: 20131212
  Receipt Date: 20140107
  Transmission Date: 20141002
  Serious: No
  Sender: FDA-Public Use
  Company Number: US-009507513-1312USA004781

PATIENT
  Sex: Female

DRUGS (1)
  1. NEXPLANON [Suspect]
     Indication: CONTRACEPTION
     Route: 059

REACTIONS (3)
  - Implant site pain [Not Recovered/Not Resolved]
  - Implant site pain [Not Recovered/Not Resolved]
  - Paraesthesia [Not Recovered/Not Resolved]
